FAERS Safety Report 24781061 (Version 1)
Quarter: 2024Q4

REPORT INFORMATION
  Report Type: Spontaneous
  Country: US (occurrence: US)
  Receive Date: 20241227
  Receipt Date: 20241227
  Transmission Date: 20250115
  Serious: No
  Sender: CELLTRION
  Company Number: US-CELLTRION INC.-2024US002495

PATIENT

DRUGS (2)
  1. TRUXIMA [Suspect]
     Active Substance: RITUXIMAB-ABBS
     Indication: Antiphospholipid syndrome
     Dosage: 1000 MG DAYS 1 AND 15
     Dates: start: 20240109
  2. TRUXIMA [Suspect]
     Active Substance: RITUXIMAB-ABBS
     Dosage: 1000 MG EVERY 6 MONTHS
     Dates: start: 20240121

REACTIONS (1)
  - Off label use [Unknown]
